FAERS Safety Report 5619512-8 (Version None)
Quarter: 2008Q1

REPORT INFORMATION
  Report Type: 
  Country: None (occurrence: None)
  Receive Date: 20080110
  Receipt Date: 20071113
  Transmission Date: 20080703
  Serious: Yes (Other)
  Sender: FDA-Public Use
  Company Number: OSCN-PR-0711S-0452

PATIENT
  Age: 50 Year
  Sex: Female

DRUGS (1)
  1. OMNISCAN [Suspect]
     Indication: FAMILIAL RISK FACTOR
     Dosage: 20 ML, SINGLE DOSE, I.V.
     Route: 042
     Dates: start: 20071106, end: 20071106

REACTIONS (1)
  - ANAPHYLACTOID REACTION [None]
